FAERS Safety Report 15749761 (Version 1)
Quarter: 2018Q4

REPORT INFORMATION
  Report Type: Report from Study
  Country: GB (occurrence: GB)
  Receive Date: 20181221
  Receipt Date: 20181221
  Transmission Date: 20190205
  Serious: No
  Sender: FDA-Public Use
  Company Number: GB-ROCHE-2225898

PATIENT
  Sex: Female

DRUGS (1)
  1. OCRELIZUMAB. [Suspect]
     Active Substance: OCRELIZUMAB
     Indication: RELAPSING-REMITTING MULTIPLE SCLEROSIS
     Route: 065

REACTIONS (7)
  - Feeling hot [Unknown]
  - Body temperature abnormal [Unknown]
  - Pruritus [Unknown]
  - Urinary tract infection [Unknown]
  - Muscle twitching [Unknown]
  - Arthralgia [Unknown]
  - Pain in extremity [Unknown]
